FAERS Safety Report 26123276 (Version 1)
Quarter: 2025Q4

REPORT INFORMATION
  Report Type: 
  Country: CN (occurrence: CN)
  Receive Date: 20251204
  Receipt Date: 20251204
  Transmission Date: 20260119
  Serious: Yes (Life-Threatening)
  Sender: JIANGSU HANSOH PHARMACEUTICAL GROUP CO., LTD.
  Company Number: CN-Hansoh-20252190022965

PATIENT
  Age: 57 Year
  Sex: Female
  Weight: 42 kg

DRUGS (2)
  1. PEMETREXED DISODIUM [Suspect]
     Active Substance: PEMETREXED DISODIUM
     Indication: Lung adenocarcinoma stage IV
     Dosage: 0.6G,QD
     Route: 041
     Dates: start: 20251129, end: 20251129
  2. CARBOPLATIN [Suspect]
     Active Substance: CARBOPLATIN
     Indication: Lung adenocarcinoma stage IV
     Dosage: 0.2 G, QD
     Route: 041
     Dates: start: 20251129, end: 20251129

REACTIONS (4)
  - Palpitations [Recovering/Resolving]
  - Cold sweat [Recovering/Resolving]
  - Pulse pressure increased [Recovering/Resolving]
  - Heart rate decreased [Recovering/Resolving]

NARRATIVE: CASE EVENT DATE: 20251129
